FAERS Safety Report 4659007-1 (Version None)
Quarter: 2005Q2

REPORT INFORMATION
  Report Type: 
  Country: None (occurrence: None)
  Receive Date: 20050509
  Receipt Date: 20050427
  Transmission Date: 20051028
  Serious: Yes (Hospitalization)
  Sender: FDA-Public Use
  Company Number: 05P-083-0298916-00

PATIENT
  Age: 38 Year
  Sex: Male

DRUGS (1)
  1. BIAXIN [Suspect]
     Indication: TONSILLITIS
     Dosage: 500 MG, 2 IN 1 D, PER ORAL
     Route: 048
     Dates: start: 20050420, end: 20050421

REACTIONS (2)
  - AGITATION [None]
  - HALLUCINATION [None]
